FAERS Safety Report 9914064 (Version 1)
Quarter: 2014Q1

REPORT INFORMATION
  Report Type: Spontaneous
  Country: GB (occurrence: GB)
  Receive Date: 20140220
  Receipt Date: 20140220
  Transmission Date: 20141002
  Serious: Yes (Other)
  Sender: FDA-Public Use
  Company Number: GB-MYLANLABS-2014S1003389

PATIENT
  Age: 7 Year
  Sex: Male

DRUGS (1)
  1. EPIPEN [Suspect]
     Indication: PRODUCT USED FOR UNKNOWN INDICATION
     Route: 030

REACTIONS (2)
  - Accidental exposure to product by child [Recovered/Resolved]
  - Wound [Recovered/Resolved]
